FAERS Safety Report 5286458-7 (Version None)
Quarter: 2007Q2

REPORT INFORMATION
  Report Type: 
  Country: None (occurrence: None)
  Receive Date: 20070404
  Receipt Date: 20070328
  Transmission Date: 20071010
  Serious: Yes (Death, Hospitalization, Other)
  Sender: FDA-Public Use
  Company Number: US-JNJFOC-20070307056

PATIENT
  Sex: Female
  Weight: 58.97 kg

DRUGS (1)
  1. FENTANYL TRANSDERMAL SYSTEM [Suspect]
     Indication: PAIN
     Route: 062

REACTIONS (5)
  - BONE NEOPLASM MALIGNANT [None]
  - FAECAL VOMITING [None]
  - HEART RATE INCREASED [None]
  - OEDEMA PERIPHERAL [None]
  - PNEUMONIA ASPIRATION [None]
